FAERS Safety Report 14418779 (Version 1)
Quarter: 2018Q1

REPORT INFORMATION
  Report Type: Spontaneous
  Country: US (occurrence: US)
  Receive Date: 20180122
  Receipt Date: 20180122
  Transmission Date: 20180509
  Serious: No
  Sender: FDA-Public Use
  Company Number: US-TEVA-767489ACC

PATIENT
  Sex: Female

DRUGS (3)
  1. TRAZODONE [Suspect]
     Active Substance: TRAZODONE HYDROCHLORIDE
     Route: 065
  2. REXULTI [Concomitant]
     Active Substance: BREXPIPRAZOLE
  3. LITHIUM. [Suspect]
     Active Substance: LITHIUM
     Route: 065

REACTIONS (2)
  - Asthenopia [Unknown]
  - Vision blurred [Unknown]
